FAERS Safety Report 23568889 (Version 1)
Quarter: 2024Q1

REPORT INFORMATION
  Report Type: Spontaneous
  Country: FR (occurrence: None)
  Receive Date: 20240227
  Receipt Date: 20240227
  Transmission Date: 20240409
  Serious: Yes (Death, Life-Threatening, Hospitalization, Other)
  Sender: FDA-Public Use
  Company Number: FR-Orion Corporation ORION PHARMA-TREX2024-0039

PATIENT
  Age: 87 Year
  Sex: Male
  Weight: 58.2 kg

DRUGS (10)
  1. METHOTREXATE SODIUM [Suspect]
     Active Substance: METHOTREXATE SODIUM
     Indication: Rheumatoid arthritis
     Dosage: STRENGTH: 10 MG
     Dates: end: 20231221
  2. PREDNISONE [Concomitant]
     Active Substance: PREDNISONE
  3. TAMSULOSIN HYDROCHLORIDE [Concomitant]
     Active Substance: TAMSULOSIN HYDROCHLORIDE
  4. PREDNISONE [Concomitant]
     Active Substance: PREDNISONE
     Indication: Rheumatoid arthritis
  5. MITOMYCIN [Concomitant]
     Active Substance: MITOMYCIN
     Indication: Bladder cancer
     Dosage: 8 COURSES, (THE FIRST 7 BETWEEN 2014 AND 2022)
  6. MITOMYCIN [Concomitant]
     Active Substance: MITOMYCIN
     Dates: start: 20231026, end: 20231214
  7. IRBESARTAN [Concomitant]
     Active Substance: IRBESARTAN
  8. TAMSULOSIN [Concomitant]
     Active Substance: TAMSULOSIN
  9. CEFPODOXIME [Concomitant]
     Active Substance: CEFPODOXIME
     Indication: Bronchitis
     Dates: start: 202311, end: 20231221
  10. FOLIC ACID [Concomitant]
     Active Substance: FOLIC ACID

REACTIONS (8)
  - COVID-19 [Fatal]
  - Pancytopenia [Unknown]
  - Bone marrow failure [Recovered/Resolved]
  - COVID-19 pneumonia [Fatal]
  - Pneumocystis jirovecii pneumonia [Fatal]
  - Acute respiratory distress syndrome [Fatal]
  - Toxicity to various agents [Unknown]
  - Bronchitis [Unknown]

NARRATIVE: CASE EVENT DATE: 20230901
